FAERS Safety Report 12037105 (Version 1)
Quarter: 2016Q1

REPORT INFORMATION
  Report Type: Spontaneous
  Country: US (occurrence: US)
  Receive Date: 20160208
  Receipt Date: 20160208
  Transmission Date: 20160526
  Serious: No
  Sender: FDA-Public Use
  Company Number: US-ASTRAZENECA-2016SE09731

PATIENT
  Sex: Female
  Weight: 60.8 kg

DRUGS (1)
  1. QUETIAPINE FUMARATE. [Suspect]
     Active Substance: QUETIAPINE FUMARATE
     Indication: SCHIZOPHRENIA
     Dosage: 125 MG IN THE MORNING AND 225MG AT NIGHT
     Route: 048
     Dates: start: 201508

REACTIONS (3)
  - Pollakiuria [Unknown]
  - Enuresis [Unknown]
  - Urinary incontinence [Unknown]
